FAERS Safety Report 5591504-7 (Version None)
Quarter: 2008Q1

REPORT INFORMATION
  Report Type: 
  Country: None (occurrence: None)
  Receive Date: 20080115
  Receipt Date: 20080104
  Transmission Date: 20080703
  Serious: Yes (Death)
  Sender: FDA-Public Use
  Company Number: US-JNJFOC-20080101753

PATIENT
  Age: 42 Year
  Sex: Female

DRUGS (6)
  1. ACETAMINOPHEN [Suspect]
  2. ACETAMINOPHEN [Suspect]
     Indication: DRUG USE FOR UNKNOWN INDICATION
  3. MECLIZINE [Suspect]
     Indication: DRUG USE FOR UNKNOWN INDICATION
  4. HYDROXYZINE [Suspect]
     Indication: DRUG USE FOR UNKNOWN INDICATION
  5. VERAPAMIL [Suspect]
     Indication: DRUG USE FOR UNKNOWN INDICATION
  6. ETHANOL, BEVERAGE [Suspect]
     Indication: DRUG USE FOR UNKNOWN INDICATION

REACTIONS (2)
  - COMPLETED SUICIDE [None]
  - DRUG TOXICITY [None]
